FAERS Safety Report 12310915 (Version 1)
Quarter: 2016Q2

REPORT INFORMATION
  Report Type: Spontaneous
  Country: US (occurrence: US)
  Receive Date: 20160427
  Receipt Date: 20160427
  Transmission Date: 20160815
  Serious: Yes (Other)
  Sender: FDA-Public Use
  Company Number: US-SA-2016SA080688

PATIENT
  Age: 84 Year
  Sex: Female

DRUGS (2)
  1. ENOXAPARIN SODIUM - WINTHROP [Suspect]
     Active Substance: ENOXAPARIN SODIUM
     Indication: ANTICOAGULANT THERAPY
     Route: 065
  2. ENOXAPARIN SODIUM - WINTHROP [Suspect]
     Active Substance: ENOXAPARIN SODIUM
     Indication: ANTICOAGULANT THERAPY
     Route: 065
     Dates: start: 20160331, end: 20160402

REACTIONS (10)
  - Headache [Unknown]
  - Agitation [Unknown]
  - Dyspnoea [Unknown]
  - Heart rate increased [Unknown]
  - Fatigue [Unknown]
  - Diarrhoea [Unknown]
  - Injection site bruising [Unknown]
  - Cardiac ablation [Unknown]
  - Hypotension [Unknown]
  - Injection site rash [Unknown]

NARRATIVE: CASE EVENT DATE: 20160401
